FAERS Safety Report 6181848-2 (Version None)
Quarter: 2009Q2

REPORT INFORMATION
  Report Type: 
  Country: None (occurrence: None)
  Receive Date: 20090506
  Receipt Date: 20090424
  Transmission Date: 20091009
  Serious: Yes (Other)
  Sender: FDA-Public Use
  Company Number: GB-ELI_LILLY_AND_COMPANY-GB200904005715

PATIENT
  Age: 13 Year
  Sex: Male

DRUGS (1)
  1. STRATTERA [Suspect]
     Indication: ABNORMAL BEHAVIOUR
     Dosage: 25 MG, DAILY (1/D)
     Route: 048
     Dates: start: 20090101, end: 20090301

REACTIONS (7)
  - DRUG WITHDRAWAL SYNDROME [None]
  - DYSPNOEA [None]
  - ERYTHEMA [None]
  - HYPERHIDROSIS [None]
  - PALLOR [None]
  - RESPIRATORY RATE INCREASED [None]
  - STARING [None]
